FAERS Safety Report 8547375-X (Version None)
Quarter: 2012Q3

REPORT INFORMATION
  Report Type: 
  Country: None (occurrence: None)
  Receive Date: 20120727
  Receipt Date: 20120323
  Transmission Date: 20120928
  Serious: No
  Sender: FDA-Public Use
  Company Number: US-ASTRAZENECA-2012SE19947

PATIENT
  Age: 47 Year
  Sex: Female
  Weight: 60.8 kg

DRUGS (5)
  1. MORPHINE SULFATE [Concomitant]
  2. AMLODIPINE [Concomitant]
     Indication: HYPERTENSION
  3. LEVOTHYROXINE SODIUM [Concomitant]
     Indication: HYPOTHYROIDISM
  4. OXYCODONE HCL [Concomitant]
  5. SEROQUEL [Suspect]
     Indication: INSOMNIA
     Route: 048
     Dates: start: 20050101

REACTIONS (5)
  - DRUG DEPENDENCE [None]
  - OFF LABEL USE [None]
  - MUSCLE SPASMS [None]
  - INSOMNIA [None]
  - INTENTIONAL DRUG MISUSE [None]
